FAERS Safety Report 5270936-0 (Version None)
Quarter: 2007Q1

REPORT INFORMATION
  Report Type: 
  Country: None (occurrence: None)
  Receive Date: 20070312
  Receipt Date: 20070305
  Transmission Date: 20070707
  Serious: Yes (Death, Other)
  Sender: FDA-Public Use
  Company Number: 200610861

PATIENT
  Age: 36 Year
  Sex: Female

DRUGS (4)
  1. CARIMUNE [Suspect]
     Indication: GALLBLADDER DISORDER
     Dosage: IV
     Route: 042
  2. CARIMUNE [Suspect]
     Indication: IDIOPATHIC THROMBOCYTOPENIC PURPURA
     Dosage: IV
     Route: 042
  3. CARIMUNE [Suspect]
     Indication: PLATELET COUNT DECREASED
     Dosage: IV
     Route: 042
  4. STEROIDS [Concomitant]

REACTIONS (9)
  - CARDIO-RESPIRATORY ARREST [None]
  - COLD SWEAT [None]
  - CONFUSIONAL STATE [None]
  - DIZZINESS [None]
  - HYPERHIDROSIS [None]
  - HYPOTENSION [None]
  - RESPIRATORY DISTRESS [None]
  - VENTRICULAR FIBRILLATION [None]
  - VOMITING [None]
